FAERS Safety Report 5259351-3 (Version None)
Quarter: 2007Q1

REPORT INFORMATION
  Report Type: 
  Country: None (occurrence: None)
  Receive Date: 20070302
  Receipt Date: 20070219
  Transmission Date: 20070707
  Serious: Yes (Other)
  Sender: FDA-Public Use
  Company Number: GXKR2007FR01787

PATIENT
  Age: 72 Year
  Sex: Male

DRUGS (4)
  1. OXALIPLATIN (NGX)(OXALIPLATIN) UNKNOWN [Suspect]
     Indication: COLON CANCER
     Dosage: 12 CYCLES
     Dates: start: 20040909, end: 20050221
  2. LEUCOVORIN CALCIUM (NGX) (CALCIUM FOLINATE) UNKNOWN [Suspect]
     Indication: METASTASIS
  3. FLUOROURACIL [Suspect]
     Indication: METASTASIS
  4. IRINOTECAN HCL [Concomitant]

REACTIONS (3)
  - HEPATIC ATROPHY [None]
  - HEPATIC FIBROSIS [None]
  - VENOOCCLUSIVE LIVER DISEASE [None]
